FAERS Safety Report 7205434-8 (Version None)
Quarter: 2010Q4

REPORT INFORMATION
  Report Type: 
  Country: None (occurrence: None)
  Receive Date: 20101231
  Receipt Date: 20101220
  Transmission Date: 20110411
  Serious: Yes (Other)
  Sender: FDA-Public Use
  Company Number: PHHY2010CN87193

PATIENT
  Sex: Female

DRUGS (1)
  1. FEMARA [Suspect]
     Indication: METASTASES TO BONE
     Dosage: 2.5 MG DAILY
     Route: 048

REACTIONS (2)
  - BLINDNESS [None]
  - CEREBRAL THROMBOSIS [None]
